FAERS Safety Report 25417406 (Version 1)
Quarter: 2025Q2

REPORT INFORMATION
  Report Type: Spontaneous
  Country: US (occurrence: None)
  Receive Date: 20250608
  Receipt Date: 20250608
  Transmission Date: 20250716
  Serious: No
  Sender: FDA-CTU
  Company Number: None

PATIENT
  Age: 70 Year
  Sex: Female
  Weight: 63 kg

DRUGS (1)
  1. DOXYCYCLINE [Suspect]
     Active Substance: DOXYCYCLINE
     Indication: Arthropod bite
     Route: 048
     Dates: start: 20250605, end: 20250605

REACTIONS (4)
  - Vision blurred [None]
  - Dyschromatopsia [None]
  - Malaise [None]
  - Syncope [None]

NARRATIVE: CASE EVENT DATE: 20250606
